FAERS Safety Report 5367778-4 (Version None)
Quarter: 2007Q2

REPORT INFORMATION
  Report Type: 
  Country: None (occurrence: None)
  Receive Date: 20070622
  Receipt Date: 20070611
  Transmission Date: 20071010
  Serious: Yes (Death, Other)
  Sender: FDA-Public Use
  Company Number: US-SHR-US-2007-022882

PATIENT

DRUGS (6)
  1. CAMPATH [Suspect]
     Dosage: 3/10/30 MG TIWX6 WEEKS
     Dates: start: 20050101
  2. FLUDARA [Suspect]
     Dosage: 25MG/M2 X6 COURSES
     Route: 042
  3. RITUXAN [Suspect]
     Dosage: 6 COURSES
  4. BENADRYL ^ACHE^ [Concomitant]
     Indication: PREMEDICATION
  5. ACETAMINOPHEN [Concomitant]
     Indication: PREMEDICATION
  6. COTRIM [Concomitant]
     Indication: INFECTION PROPHYLAXIS

REACTIONS (3)
  - BRAIN HERNIATION [None]
  - ENCEPHALITIC INFECTION [None]
  - MENINGITIS VIRAL [None]
